FAERS Safety Report 8233395 (Version 2)
Quarter: 2013Q1

REPORT INFORMATION
  Report Type: Spontaneous
  Country: US (occurrence: None)
  Receive Date: 20111101
  Receipt Date: 20130211
  Transmission Date: 20140127
  Serious: Yes (Hospitalization, Other)
  Sender: FDA-Public Use
  Company Number: TPA2011A06805

PATIENT
  Sex: Male

DRUGS (1)
  1. ACTOPLUS MET (PIOGLITAZONE HYDROCHLORIDE, METFORMIN HYDROCHLORIDE)? [Suspect]
     Indication: TYPE 2 DIABETES MELLITUS
     Dates: start: 2008, end: 201101

REACTIONS (1)
  - Bladder cancer [None]
